FAERS Safety Report 25839477 (Version 1)
Quarter: 2025Q3

REPORT INFORMATION
  Report Type: Report from Study
  Country: US (occurrence: US)
  Receive Date: 20250924
  Receipt Date: 20250924
  Transmission Date: 20251021
  Serious: Yes (Other)
  Sender: SUNOVION
  Company Number: US-SMPA-2025SPA011888

PATIENT
  Age: 67 Year
  Sex: Male

DRUGS (3)
  1. ORGOVYX [Suspect]
     Active Substance: RELUGOLIX
     Indication: Prostate cancer
     Dosage: 120 MG, QD
     Route: 048
     Dates: start: 20250825, end: 20250825
  2. ORGOVYX [Suspect]
     Active Substance: RELUGOLIX
     Dosage: 360 MG, SINGLE
     Route: 048
     Dates: start: 20250826, end: 20250826
  3. ORGOVYX [Suspect]
     Active Substance: RELUGOLIX
     Dosage: 120 MG, QD
     Route: 048
     Dates: start: 20250827

REACTIONS (7)
  - Prostatic operation [Unknown]
  - Urethral stricture traumatic [Unknown]
  - Urinary retention postoperative [Unknown]
  - Hot flush [Unknown]
  - Headache [Unknown]
  - Diarrhoea [Unknown]
  - Incorrect dose administered [Unknown]
